FAERS Safety Report 11264539 (Version 1)
Quarter: 2015Q3

REPORT INFORMATION
  Report Type: Spontaneous
  Country: US (occurrence: US)
  Receive Date: 20150713
  Receipt Date: 20150713
  Transmission Date: 20151125
  Serious: Yes (Hospitalization)
  Sender: FDA-Public Use
  Company Number: US-AMGEN-USASP2015068227

PATIENT
  Age: 63 Year
  Sex: Male

DRUGS (1)
  1. ENBREL [Suspect]
     Active Substance: ETANERCEPT
     Indication: RHEUMATOID ARTHRITIS
     Dosage: QWK
     Route: 065
     Dates: start: 20030301

REACTIONS (5)
  - Knee operation [Recovered/Resolved]
  - Hip arthroplasty [Recovered/Resolved]
  - Arthritis [Not Recovered/Not Resolved]
  - Knee arthroplasty [Recovered/Resolved]
  - Chondrolysis [Not Recovered/Not Resolved]
